FAERS Safety Report 7555163-6 (Version None)
Quarter: 2011Q2

REPORT INFORMATION
  Report Type: 
  Country: None (occurrence: None)
  Receive Date: 20110617
  Receipt Date: 20110512
  Transmission Date: 20111010
  Serious: No
  Sender: FDA-Public Use
  Company Number: US-MYLANLABS-2011S1002426

PATIENT
  Age: 14 Year
  Sex: Male
  Weight: 90.72 kg

DRUGS (4)
  1. LAMICTAL [Concomitant]
     Indication: MOOD SWINGS
     Route: 048
     Dates: start: 20070101
  2. RISPERIDONE [Suspect]
     Indication: OBSESSIVE-COMPULSIVE DISORDER
     Route: 048
     Dates: start: 20070101
  3. RISPERIDONE [Suspect]
     Indication: AUTISM
     Route: 048
     Dates: start: 20070101
  4. PROZAC [Concomitant]
     Indication: OBSESSIVE-COMPULSIVE DISORDER
     Route: 048
     Dates: start: 20070101

REACTIONS (4)
  - BREAST TENDERNESS [None]
  - WEIGHT INCREASED [None]
  - HYPOTHYROIDISM [None]
  - INCREASED APPETITE [None]
